FAERS Safety Report 8222798-7 (Version None)
Quarter: 2012Q1

REPORT INFORMATION
  Report Type: 
  Country: None (occurrence: None)
  Receive Date: 20120320
  Receipt Date: 20120309
  Transmission Date: 20120608
  Serious: Yes (Other)
  Sender: FDA-Public Use
  Company Number: US-JNJFOC-20120306694

PATIENT

DRUGS (1)
  1. REMICADE [Suspect]
     Indication: MATERNAL DRUGS AFFECTING FOETUS
     Route: 064

REACTIONS (1)
  - PREMATURE BABY [None]
